FAERS Safety Report 18045579 (Version 1)
Quarter: 2020Q3

REPORT INFORMATION
  Report Type: Spontaneous
  Country: NL (occurrence: NL)
  Receive Date: 20200720
  Receipt Date: 20200720
  Transmission Date: 20201103
  Serious: Yes (Hospitalization)
  Sender: FDA-Public Use
  Company Number: NL-TEVA-2020-NL-1802378

PATIENT
  Age: 56 Year
  Sex: Male
  Weight: 77 kg

DRUGS (1)
  1. OCTREOTIDE TEVA [Suspect]
     Active Substance: OCTREOTIDE
     Indication: NEUROENDOCRINE TUMOUR
     Dosage: 30MG:THERAPY END DATE :ASKED BUT UNKNOWN
     Dates: start: 2020

REACTIONS (3)
  - Injection site haemorrhage [Recovering/Resolving]
  - Therapeutic response unexpected [Unknown]
  - Thrombocytopenia [Unknown]

NARRATIVE: CASE EVENT DATE: 20200611
